FAERS Safety Report 6492933-X (Version None)
Quarter: 2009Q4

REPORT INFORMATION
  Report Type: 
  Country: None (occurrence: None)
  Receive Date: 20091209
  Receipt Date: 20091130
  Transmission Date: 20100525
  Serious: Yes (Hospitalization, Other)
  Sender: FDA-Public Use
  Company Number: 2009US004246

PATIENT
  Age: 59 Year
  Sex: Male

DRUGS (4)
  1. PROGRAF [Suspect]
     Indication: RENAL TRANSPLANT
     Dates: start: 19990101
  2. SIROLIMUS (RAPAMUNE) [Suspect]
     Indication: RENAL TRANSPLANT
     Dosage: 4 MG. UID/QD
     Dates: start: 19990101
  3. HUMALOG [Concomitant]
  4. LANTUS [Concomitant]

REACTIONS (10)
  - ARTERIAL OCCLUSIVE DISEASE [None]
  - BAROTITIS MEDIA [None]
  - CELLULITIS [None]
  - GENERAL PHYSICAL HEALTH DETERIORATION [None]
  - IMPAIRED HEALING [None]
  - INFECTED SKIN ULCER [None]
  - ISCHAEMIA [None]
  - POST PROCEDURAL INFECTION [None]
  - SOFT TISSUE NECROSIS [None]
  - TOE AMPUTATION [None]
